FAERS Safety Report 6252208-0 (Version None)
Quarter: 2009Q2

REPORT INFORMATION
  Report Type: 
  Country: None (occurrence: None)
  Receive Date: 20090629
  Receipt Date: 20090612
  Transmission Date: 20091009
  Serious: Yes (Hospitalization)
  Sender: FDA-Public Use
  Company Number: 001018

PATIENT
  Sex: Female

DRUGS (7)
  1. LACOSAMIDE [Suspect]
     Indication: EPILEPSY
     Dosage: TABLET 20 MG BID ORAL
     Route: 048
     Dates: start: 20050401
  2. LAMICTAL [Concomitant]
  3. QUAMATEL (FAMOTIDINE) [Concomitant]
  4. GERODORM (CINOLAZEPAM) [Concomitant]
  5. CLONAZEPAM [Concomitant]
  6. SERTAN (PRIMIDONE) [Concomitant]
  7. TRILEPTAL [Concomitant]

REACTIONS (2)
  - POLYDIPSIA [None]
  - POLYURIA [None]
